FAERS Safety Report 8489702-8 (Version None)
Quarter: 2012Q3

REPORT INFORMATION
  Report Type: 
  Country: None (occurrence: None)
  Receive Date: 20120705
  Receipt Date: 20120626
  Transmission Date: 20120928
  Serious: Yes (Hospitalization)
  Sender: FDA-Public Use
  Company Number: GB-GLAXOSMITHKLINE-A0983246A

PATIENT
  Sex: Female

DRUGS (5)
  1. VALIUM [Concomitant]
  2. ZYPREXA [Concomitant]
  3. LAMICTAL XR [Suspect]
     Indication: CONVULSION
     Dosage: 250MG UNKNOWN
     Route: 048
     Dates: start: 20110601
  4. PHENOBARBITAL TAB [Concomitant]
  5. KEPPRA [Concomitant]

REACTIONS (2)
  - GRAND MAL CONVULSION [None]
  - DRUG INEFFECTIVE [None]
